FAERS Safety Report 5567580-4 (Version None)
Quarter: 2007Q4

REPORT INFORMATION
  Report Type: 
  Country: None (occurrence: None)
  Receive Date: 20071219
  Receipt Date: 20071207
  Transmission Date: 20080405
  Serious: Yes (Other)
  Sender: FDA-Public Use
  Company Number: CA-PFIZER INC-2007094010

PATIENT
  Sex: Male
  Weight: 101.6 kg

DRUGS (9)
  1. CHANTIX [Suspect]
     Indication: SMOKING CESSATION THERAPY
     Route: 048
     Dates: start: 20070910, end: 20071024
  2. EFFEXOR [Concomitant]
     Indication: GENERALISED ANXIETY DISORDER
  3. OLANZAPINE [Concomitant]
     Indication: POST-TRAUMATIC STRESS DISORDER
  4. OLANZAPINE [Concomitant]
     Indication: NIGHTMARE
  5. NEURONTIN [Concomitant]
     Indication: BACK PAIN
  6. METFORMIN HCL [Concomitant]
  7. ALTACE [Concomitant]
     Dosage: DAILY DOSE:10MG
  8. ZOCOR [Concomitant]
     Dosage: DAILY DOSE:40MG
  9. ACETYLSALICYLIC ACID SRT [Concomitant]
     Dosage: DAILY DOSE:325MG

REACTIONS (5)
  - ABNORMAL DREAMS [None]
  - AGGRESSION [None]
  - EUPHORIC MOOD [None]
  - INSOMNIA [None]
  - MANIA [None]
